FAERS Safety Report 7993679-9 (Version None)
Quarter: 2011Q4

REPORT INFORMATION
  Report Type: 
  Country: None (occurrence: None)
  Receive Date: 20111219
  Receipt Date: 20080304
  Transmission Date: 20120403
  Serious: Yes (Other)
  Sender: FDA-Public Use
  Company Number: PHHY2008MX043810

PATIENT
  Sex: Female

DRUGS (1)
  1. DIOVAN [Suspect]
     Indication: HYPERTENSION
     Dosage: 80 MG, QD
     Route: 048
     Dates: start: 20040501, end: 20080201

REACTIONS (4)
  - ANGINA PECTORIS [None]
  - DYSPNOEA [None]
  - HYPOAESTHESIA [None]
  - CHEST PAIN [None]
